FAERS Safety Report 19835313 (Version 4)
Quarter: 2021Q4

REPORT INFORMATION
  Report Type: Spontaneous
  Country: BR (occurrence: BR)
  Receive Date: 20210914
  Receipt Date: 20211101
  Transmission Date: 20220303
  Serious: Yes (Life-Threatening, Hospitalization, Other)
  Sender: FDA-Public Use
  Company Number: NVSC2021BR206374

PATIENT
  Age: 62 Year
  Sex: Female
  Weight: 53 kg

DRUGS (5)
  1. LETROZOLE [Suspect]
     Active Substance: LETROZOLE
     Indication: Ovarian cancer
     Dosage: 2.5 MG, QD
     Route: 065
     Dates: start: 20201123, end: 20210830
  2. PALBOCICLIB [Suspect]
     Active Substance: PALBOCICLIB
     Indication: Ovarian cancer
     Dosage: 125 MG, QD
     Route: 065
     Dates: start: 20201123, end: 20210830
  3. LACTULOSE [Concomitant]
     Active Substance: LACTULOSE
     Indication: Constipation
     Dosage: UNK
     Route: 048
     Dates: start: 20210110
  4. PROMETHAZINE [Concomitant]
     Active Substance: PROMETHAZINE HYDROCHLORIDE
     Indication: Hypersensitivity
     Dosage: UNK
     Route: 048
     Dates: start: 20210212
  5. NAPHAZOLINE [Concomitant]
     Active Substance: NAPHAZOLINE\NAPHAZOLINE HYDROCHLORIDE
     Indication: Nasal congestion
     Dosage: UNK
     Route: 065
     Dates: start: 2015

REACTIONS (5)
  - Acute myocardial infarction [Recovering/Resolving]
  - Electrocardiogram T wave inversion [Recovering/Resolving]
  - Pain [Recovering/Resolving]
  - Deep vein thrombosis [Recovered/Resolved]
  - Product use in unapproved indication [Unknown]

NARRATIVE: CASE EVENT DATE: 20201123
